FAERS Safety Report 4900706-1 (Version None)
Quarter: 2006Q1

REPORT INFORMATION
  Report Type: 
  Country: None (occurrence: None)
  Receive Date: 20060201
  Receipt Date: 20060120
  Transmission Date: 20060701
  Serious: Yes (Hospitalization, Disabling, Other)
  Sender: FDA-Public Use
  Company Number: 2005-133705-NL

PATIENT
  Age: 29 Year
  Sex: Female
  Weight: 48.1 kg

DRUGS (4)
  1. NUVARING [Suspect]
     Indication: CONTRACEPTION
     Dosage: VAGINAL, 3 WEEKS IN, 1 WEEK OUT
     Route: 067
     Dates: start: 20050815, end: 20051014
  2. EXCEDRIN (MIGRAINE) [Suspect]
     Indication: HEADACHE
     Dosage: 1500 MG DAILY
     Dates: start: 20051002
  3. EXCEDRIN (MIGRAINE) [Suspect]
     Indication: HEADACHE
     Dosage: 1500 MG DAILY, AT 10 PM
     Dates: start: 20051008
  4. EXCEDRIN (MIGRAINE) [Suspect]
     Indication: HEADACHE
     Dosage: 1500 MG DAILY, AT 2 AM
     Dates: start: 20051009

REACTIONS (24)
  - ANTINUCLEAR ANTIBODY POSITIVE [None]
  - ARTHRALGIA [None]
  - CARDIOVASCULAR DISORDER [None]
  - CONSTIPATION [None]
  - DEVICE FAILURE [None]
  - DIZZINESS [None]
  - FEELING ABNORMAL [None]
  - FOOD INTOLERANCE [None]
  - GASTRIC DISORDER [None]
  - HEADACHE [None]
  - HYPERSENSITIVITY [None]
  - HYPOMENORRHOEA [None]
  - LOSS OF CONSCIOUSNESS [None]
  - MENSTRUAL DISORDER [None]
  - METRORRHAGIA [None]
  - MUSCLE DISORDER [None]
  - MUSCLE SPASMS [None]
  - NAUSEA [None]
  - NIGHT SWEATS [None]
  - OXYGEN SATURATION DECREASED [None]
  - PYREXIA [None]
  - SYNCOPE [None]
  - VISION BLURRED [None]
  - VOMITING [None]
